FAERS Safety Report 21116793 (Version 1)
Quarter: 2022Q3

REPORT INFORMATION
  Report Type: Report from Study
  Country: IL (occurrence: IL)
  Receive Date: 20220722
  Receipt Date: 20220722
  Transmission Date: 20221027
  Serious: Yes (Other)
  Sender: FDA-Public Use
  Company Number: IL-TEVAIL-2022-IL-2055811

PATIENT
  Age: 4 Year

DRUGS (12)
  1. BORTEZOMIB [Suspect]
     Active Substance: BORTEZOMIB
     Indication: Immune-mediated cytopenia
     Dosage: FIVE DOSES
     Route: 065
  2. MYCOPHENOLATE MOFETIL [Suspect]
     Active Substance: MYCOPHENOLATE MOFETIL
     Indication: Prophylaxis against graft versus host disease
     Route: 065
  3. FLUDARABINE [Suspect]
     Active Substance: FLUDARABINE PHOSPHATE
     Indication: Bone marrow conditioning regimen
     Route: 065
  4. TREOSULFAN [Suspect]
     Active Substance: TREOSULFAN
     Indication: Bone marrow conditioning regimen
     Route: 065
  5. CAMPATH [Suspect]
     Active Substance: ALEMTUZUMAB
     Indication: Bone marrow conditioning regimen
     Route: 065
  6. THYMOCYTE IMMUNE GLOBULIN NOS [Suspect]
     Active Substance: THYMOCYTE IMMUNE GLOBULIN NOS
     Indication: Bone marrow conditioning regimen
     Route: 065
  7. CYCLOSPORINE [Suspect]
     Active Substance: CYCLOSPORINE
     Indication: Prophylaxis against graft versus host disease
     Route: 065
  8. MELPHALAN [Suspect]
     Active Substance: MELPHALAN
     Indication: Bone marrow conditioning regimen
     Route: 065
  9. RAPAMYCIN [Suspect]
     Active Substance: SIROLIMUS
     Indication: Immune-mediated cytopenia
     Dosage: FOR 3 MONTHS
     Route: 065
  10. RITUXIMAB [Suspect]
     Active Substance: RITUXIMAB
     Indication: Immune-mediated cytopenia
     Dosage: FOUR DOSES
     Route: 065
  11. DARATUMUMAB [Suspect]
     Active Substance: DARATUMUMAB
     Indication: Immune-mediated cytopenia
     Dosage: FOUR DOSES
     Route: 065
  12. PREDNISONE [Suspect]
     Active Substance: PREDNISONE
     Indication: Immunosuppressant drug therapy
     Route: 065

REACTIONS (4)
  - Autoimmune haemolytic anaemia [Recovered/Resolved]
  - Immune thrombocytopenia [Recovered/Resolved]
  - Autoimmune neutropenia [Recovered/Resolved]
  - Therapy non-responder [Unknown]
